FAERS Safety Report 16424217 (Version 4)
Quarter: 2019Q2

REPORT INFORMATION
  Report Type: Spontaneous
  Country: JP (occurrence: JP)
  Receive Date: 20190613
  Receipt Date: 20190615
  Transmission Date: 20190711
  Serious: Yes (Other)
  Sender: FDA-Public Use
  Company Number: PHJP2019JP006443

PATIENT
  Age: 13 Year
  Sex: Male
  Weight: 32.3 kg

DRUGS (9)
  1. PREDNISOLONE. [Concomitant]
     Active Substance: PREDNISOLONE
     Dosage: 20-30 MG/DAY
     Route: 048
  2. MESALAZINE [Concomitant]
     Active Substance: MESALAMINE
     Indication: CROHN^S DISEASE
     Dosage: UNK
     Route: 065
  3. PREDNISOLONE. [Concomitant]
     Active Substance: PREDNISOLONE
     Dosage: TAPERED OUT FROM 45 MG/DAY TO 10 MG/DAY
     Route: 048
  4. PREDNISOLONE. [Concomitant]
     Active Substance: PREDNISOLONE
     Dosage: 15-35 MG/DAY
     Route: 048
     Dates: start: 201401
  5. CICLOSPORIN [Suspect]
     Active Substance: CYCLOSPORINE
     Dosage: 70 MG, QD
     Route: 065
  6. PREDNISOLONE. [Concomitant]
     Active Substance: PREDNISOLONE
     Indication: OSTEOMYELITIS CHRONIC
     Dosage: 45 MG, UNK
     Route: 048
     Dates: start: 201311
  7. CICLOSPORIN [Suspect]
     Active Substance: CYCLOSPORINE
     Indication: OSTEOMYELITIS CHRONIC
     Dosage: 120 MG, QD
     Route: 065
     Dates: start: 201404
  8. PREDNISOLONE. [Concomitant]
     Active Substance: PREDNISOLONE
     Dosage: 10 MG, UNK
     Route: 048
  9. PREDNISOLONE. [Concomitant]
     Active Substance: PREDNISOLONE
     Dosage: 40 MG, UNK
     Route: 048

REACTIONS (6)
  - Product use in unapproved indication [Unknown]
  - Pain [Unknown]
  - Renal impairment [Recovered/Resolved]
  - Swelling face [Unknown]
  - Disease recurrence [Unknown]
  - Osteomyelitis chronic [Unknown]
